FAERS Safety Report 25845940 (Version 2)
Quarter: 2025Q4

REPORT INFORMATION
  Report Type: Spontaneous
  Country: EU (occurrence: EU)
  Receive Date: 20250925
  Receipt Date: 20251007
  Transmission Date: 20260118
  Serious: Yes (Life-Threatening, Hospitalization, Other)
  Sender: AUROBINDO
  Company Number: EU-MLMSERVICE-20250905-PI637221-00326-1

PATIENT
  Age: 60 Year
  Sex: Female

DRUGS (8)
  1. VALACYCLOVIR HYDROCHLORIDE [Suspect]
     Active Substance: VALACYCLOVIR HYDROCHLORIDE
     Indication: Antiviral prophylaxis
     Dosage: ON DAY 61 STARTED
     Route: 048
     Dates: start: 2024, end: 2024
  2. BENDAMUSTINE [Suspect]
     Active Substance: BENDAMUSTINE
     Indication: Chronic lymphocytic leukaemia
     Dosage: UNK
     Route: 065
     Dates: start: 2015, end: 2016
  3. ACYCLOVIR [Suspect]
     Active Substance: ACYCLOVIR
     Indication: Herpes zoster disseminated
     Dosage: 10 MILLIGRAM/KILOGRAM, 3 TIMES A DAY
     Route: 065
     Dates: start: 2024
  4. ACYCLOVIR [Suspect]
     Active Substance: ACYCLOVIR
     Indication: Lung disorder
  5. RITUXIMAB [Suspect]
     Active Substance: RITUXIMAB
     Indication: Chronic lymphocytic leukaemia
     Dosage: UNK
     Route: 065
     Dates: start: 2015, end: 2016
  6. MEROPENEM [Concomitant]
     Active Substance: MEROPENEM
     Indication: Lung infiltration
     Dosage: 1 GRAM
     Dates: start: 202408
  7. AMPICILLIN AND SULBACTAM [Concomitant]
     Active Substance: AMPICILLIN SODIUM\SULBACTAM SODIUM
     Indication: Antibiotic therapy
     Dosage: UNK UNK, 3 TIMES A DAY
     Route: 065
     Dates: start: 2024, end: 2024
  8. PIPERACILLIN AND TAZOBACTAM [Concomitant]
     Active Substance: PIPERACILLIN SODIUM\TAZOBACTAM SODIUM
     Indication: Antibiotic therapy
     Dosage: UNK UNK, 3 TIMES A DAY
     Route: 065
     Dates: start: 2024, end: 2024

REACTIONS (4)
  - Nephropathy toxic [Recovering/Resolving]
  - Herpes zoster disseminated [Recovered/Resolved]
  - Lung disorder [Recovered/Resolved]
  - Therapy non-responder [Unknown]

NARRATIVE: CASE EVENT DATE: 20240101
